FAERS Safety Report 12376922 (Version 1)
Quarter: 2016Q2

REPORT INFORMATION
  Report Type: Report from Study
  Country: US (occurrence: US)
  Receive Date: 20160517
  Receipt Date: 20160517
  Transmission Date: 20160815
  Serious: No
  Sender: FDA-Public Use
  Company Number: US-MALLINCKRODT-T201503673

PATIENT
  Age: 53 Year
  Sex: Female
  Weight: 69 kg

DRUGS (2)
  1. REPOSITORY CORTICOTROPIN INJECTION [Suspect]
     Active Substance: CORTICOTROPIN
     Indication: SARCOIDOSIS
     Dosage: 80 UNITS, EVERY 3 DAYS
     Route: 065
     Dates: start: 20150608
  2. PREDNISONE. [Concomitant]
     Active Substance: PREDNISONE
     Dosage: UNK

REACTIONS (2)
  - Hypoaesthesia [Not Recovered/Not Resolved]
  - Muscle spasms [Not Recovered/Not Resolved]

NARRATIVE: CASE EVENT DATE: 201507
